FAERS Safety Report 14687543 (Version 2)
Quarter: 2018Q2

REPORT INFORMATION
  Report Type: Spontaneous
  Country: US (occurrence: US)
  Receive Date: 20180328
  Receipt Date: 20180425
  Transmission Date: 20180711
  Serious: No
  Sender: FDA-Public Use
  Company Number: US-ASTRAZENECA-2018SE26326

PATIENT
  Age: 31365 Day
  Sex: Female

DRUGS (4)
  1. TUDORZA PRESSAIR [Suspect]
     Active Substance: ACLIDINIUM BROMIDE
     Indication: CHRONIC OBSTRUCTIVE PULMONARY DISEASE
     Route: 055
  2. TUDORZA PRESSAIR [Suspect]
     Active Substance: ACLIDINIUM BROMIDE
     Indication: BRONCHIECTASIS
     Route: 055
  3. TUDORZA PRESSAIR [Suspect]
     Active Substance: ACLIDINIUM BROMIDE
     Indication: ASTHMA
     Route: 055
  4. TUDORZA PRESSAIR [Suspect]
     Active Substance: ACLIDINIUM BROMIDE
     Indication: EMPHYSEMA
     Route: 055

REACTIONS (5)
  - Drug dose omission [Unknown]
  - Product use in unapproved indication [Unknown]
  - Device malfunction [Unknown]
  - Dysphonia [Unknown]
  - Off label use [Unknown]

NARRATIVE: CASE EVENT DATE: 20180223
